FAERS Safety Report 9009350 (Version 1)
Quarter: 2013Q1

REPORT INFORMATION
  Report Type: Spontaneous
  Country: US (occurrence: US)
  Receive Date: 20130111
  Receipt Date: 20130111
  Transmission Date: 20140127
  Serious: Yes (Other)
  Sender: FDA-Public Use
  Company Number: US-009507513-0911USA00639

PATIENT
  Age: 6 Year
  Sex: Female
  Weight: 18.14 kg

DRUGS (1)
  1. SINGULAIR [Suspect]
     Dosage: 5 MG, QD
     Route: 048
     Dates: start: 20090201, end: 20090415

REACTIONS (5)
  - Affective disorder [Unknown]
  - Crying [Unknown]
  - Aggression [Unknown]
  - Agitation [Unknown]
  - Insomnia [Unknown]
